FAERS Safety Report 23180761 (Version 2)
Quarter: 2023Q4

REPORT INFORMATION
  Report Type: Report from Study
  Country: US (occurrence: US)
  Receive Date: 20231114
  Receipt Date: 20231229
  Transmission Date: 20240110
  Serious: Yes (Hospitalization, Other)
  Sender: FDA-Public Use
  Company Number: US-ABBVIE-5489556

PATIENT
  Sex: Female

DRUGS (1)
  1. HUMIRA [Suspect]
     Active Substance: ADALIMUMAB
     Indication: Crohn^s disease
     Dosage: FORM STRENGTH: 40MG CITRATE FREE
     Route: 058
     Dates: start: 20230725, end: 20231018

REACTIONS (7)
  - Cytomegalovirus infection [Recovered/Resolved]
  - Large intestine perforation [Recovered/Resolved]
  - Nephrolithiasis [Not Recovered/Not Resolved]
  - Streptococcal infection [Recovered/Resolved]
  - Sinusitis [Recovered/Resolved]
  - Intestinal perforation [Recovered/Resolved]
  - Respiratory syncytial virus infection [Not Recovered/Not Resolved]

NARRATIVE: CASE EVENT DATE: 20230101
